FAERS Safety Report 6329297-8 (Version None)
Quarter: 2009Q3

REPORT INFORMATION
  Report Type: 
  Country: None (occurrence: None)
  Receive Date: 20090825
  Receipt Date: 20090825
  Transmission Date: 20100115
  Serious: No
  Sender: FDA-Public Use
  Company Number: None

PATIENT
  Age: 60 Year
  Sex: Female
  Weight: 72.5755 kg

DRUGS (2)
  1. CRESTOR [Suspect]
     Indication: BLOOD CHOLESTEROL INCREASED
     Dosage: DAILY PO
     Route: 048
     Dates: start: 20060101, end: 20060630
  2. CRESTOR [Suspect]
     Indication: BLOOD CHOLESTEROL INCREASED
     Dosage: DAILY PO
     Route: 048
     Dates: start: 20090712, end: 20090812

REACTIONS (4)
  - ABASIA [None]
  - BLADDER DISORDER [None]
  - CRYING [None]
  - DIABETIC NEUROPATHY [None]
